FAERS Safety Report 24824340 (Version 2)
Quarter: 2025Q1

REPORT INFORMATION
  Report Type: Spontaneous
  Country: US (occurrence: US)
  Receive Date: 20250109
  Receipt Date: 20250124
  Transmission Date: 20250409
  Serious: Yes (Hospitalization)
  Sender: GRIFOLS
  Company Number: US-IGSA-BIG0032317

PATIENT
  Age: 83 Year
  Sex: Male
  Weight: 101.5 kg

DRUGS (23)
  1. PROLASTIN-C LIQUID [Suspect]
     Active Substance: .ALPHA.1-PROTEINASE INHIBITOR HUMAN
     Indication: Alpha-1 antitrypsin deficiency
     Dosage: 6360 MILLIGRAM, Q.WK.
     Route: 042
  2. PROLASTIN-C LIQUID [Suspect]
     Active Substance: .ALPHA.1-PROTEINASE INHIBITOR HUMAN
     Dosage: 6330 MILLIGRAM, Q.WK.
     Route: 042
  3. BUMETANIDE [Concomitant]
     Active Substance: BUMETANIDE
  4. ROPINIROLE HYDROCHLORIDE [Concomitant]
     Active Substance: ROPINIROLE HYDROCHLORIDE
  5. LEVOCETIRIZINE DIHYDROCHLORIDE [Concomitant]
     Active Substance: LEVOCETIRIZINE DIHYDROCHLORIDE
  6. VENTOLIN HFA [Concomitant]
     Active Substance: ALBUTEROL SULFATE
  7. ARNUITY ELLIPTA [Concomitant]
     Active Substance: FLUTICASONE FUROATE
  8. STIOLTO RESPIMAT [Concomitant]
     Active Substance: OLODATEROL HYDROCHLORIDE\TIOTROPIUM BROMIDE MONOHYDRATE
  9. MONTELUKAST SODIUM [Concomitant]
     Active Substance: MONTELUKAST SODIUM
  10. RAMIPRIL [Concomitant]
     Active Substance: RAMIPRIL
  11. COENZYME Q10 [Concomitant]
     Active Substance: DIETARY SUPPLEMENT\UBIDECARENONE
  12. SIMVASTATIN [Concomitant]
     Active Substance: SIMVASTATIN
  13. MAGNESIUM [Concomitant]
     Active Substance: MAGNESIUM
  14. DIPHENHYDRAMINE HYDROCHLORIDE [Concomitant]
     Active Substance: DIPHENHYDRAMINE HYDROCHLORIDE
  15. EPINEPHRINE [Concomitant]
     Active Substance: EPINEPHRINE
  16. LIDOCAINE [Concomitant]
     Active Substance: LIDOCAINE
  17. SODIUM CHLORIDE [Concomitant]
     Active Substance: SODIUM CHLORIDE
  18. ELIQUIS [Concomitant]
     Active Substance: APIXABAN
  19. FAMOTIDINE [Concomitant]
     Active Substance: FAMOTIDINE
  20. ASPIRIN [Concomitant]
     Active Substance: ASPIRIN
  21. DILTIAZEM HYDROCHLORIDE [Concomitant]
     Active Substance: DILTIAZEM HYDROCHLORIDE
     Dosage: UNK UNK, QD
  22. PROBIOTICS NOS [Concomitant]
     Active Substance: PROBIOTICS NOS
  23. ESOMEPRAZOLE MAGNESIUM [Concomitant]
     Active Substance: ESOMEPRAZOLE MAGNESIUM

REACTIONS (8)
  - Fluid retention [Unknown]
  - Liver disorder [Unknown]
  - Emphysema [Unknown]
  - Intentional dose omission [Unknown]
  - Haemoptysis [Unknown]
  - Cardiac failure congestive [Unknown]
  - Bacterial infection [Unknown]
  - Cough [Unknown]

NARRATIVE: CASE EVENT DATE: 20241226
